FAERS Safety Report 7144942-5 (Version None)
Quarter: 2010Q4

REPORT INFORMATION
  Report Type: 
  Country: None (occurrence: None)
  Receive Date: 20101208
  Receipt Date: 20101117
  Transmission Date: 20110411
  Serious: Yes (Other)
  Sender: FDA-Public Use
  Company Number: JP-PFIZER INC-2010159609

PATIENT
  Age: 66 Year
  Sex: Male

DRUGS (5)
  1. OLMETEC [Suspect]
     Indication: ESSENTIAL HYPERTENSION
     Dosage: 10 MG, 1X/DAY
     Route: 048
     Dates: start: 20100418
  2. AMLODIPINE BESYLATE [Suspect]
     Dosage: UNK
     Route: 065
  3. LIPITOR [Suspect]
     Dosage: 5 MG, UNK
     Route: 065
  4. AMARYL [Suspect]
     Dosage: 1 MG, UNK
     Route: 065
  5. OMEPRAZOLE [Suspect]
     Dosage: 10 MG, UNK
     Route: 065

REACTIONS (1)
  - RENAL FAILURE CHRONIC [None]
